FAERS Safety Report 5025447-4 (Version None)
Quarter: 2006Q2

REPORT INFORMATION
  Report Type: 
  Country: None (occurrence: None)
  Receive Date: 20060608
  Receipt Date: 20060531
  Transmission Date: 20061013
  Serious: Yes (Other)
  Sender: FDA-Public Use
  Company Number: 2006023507

PATIENT
  Age: 74 Year
  Sex: Male
  Weight: 87.0906 kg

DRUGS (7)
  1. VIAGRA [Suspect]
     Indication: ERECTILE DYSFUNCTION
     Dosage: 100 MG (100 MG, AS NECESSARY), ORAL
     Route: 048
  2. VITAMINS (VITAMINS) [Concomitant]
  3. CALCIUM (CALCIUM) [Concomitant]
  4. ASPIRIN [Concomitant]
  5. CENTRUM SILVER (ASCORBIC ACID, CALCIUM, MINERALS NOS, RETINOL, TOCOPHE [Concomitant]
  6. ALLEGRA [Concomitant]
  7. NASACORT AQ (TRIAMCINOLONE ACETONIDE) [Concomitant]

REACTIONS (5)
  - BACK PAIN [None]
  - COLON ADENOMA [None]
  - DRUG INEFFECTIVE [None]
  - HEADACHE [None]
  - OCULAR HYPERAEMIA [None]
